FAERS Safety Report 8900621 (Version 1)
Quarter: 2012Q4

REPORT INFORMATION
  Report Type: 
  Country: CA (occurrence: CA)
  Receive Date: 20121109
  Receipt Date: 20121109
  Transmission Date: 20130627
  Serious: Yes (Other)
  Sender: FDA-Public Use
  Company Number: PHHY2008CA01126

PATIENT
  Sex: Female

DRUGS (4)
  1. SANDOSTATINE LAR [Suspect]
     Indication: CARCINOID SYNDROME
     Dosage: 20 mg, every 4 week
     Route: 030
     Dates: start: 20051202
  2. CYANOCOBALAMIN [Concomitant]
  3. PAROXETINE [Concomitant]
  4. BUSPIRONE [Concomitant]

REACTIONS (7)
  - Pelvic venous thrombosis [Not Recovered/Not Resolved]
  - Nasopharyngitis [Unknown]
  - Tremor [Unknown]
  - Thirst [Unknown]
  - Hypoglycaemia [Unknown]
  - Urticaria [Unknown]
  - Rash [Unknown]
